FAERS Safety Report 4513499-7 (Version None)
Quarter: 2004Q4

REPORT INFORMATION
  Report Type: 
  Country: None (occurrence: None)
  Receive Date: 20041130
  Receipt Date: 20041118
  Transmission Date: 20050328
  Serious: Yes (Death)
  Sender: FDA-Public Use
  Company Number: SE-JNJFOC-20040607396

PATIENT
  Age: 50 Year
  Sex: Male

DRUGS (7)
  1. HALDOL [Suspect]
     Dosage: ONE ML OF SOLUTION CONTAINS 5MG OF HALDOL.
     Route: 030
  2. HEMINEVRIN [Suspect]
     Indication: INSOMNIA
     Dosage: AT NIGHT
     Route: 049
  3. STESOLID [Suspect]
     Dosage: ONE ML OF SOLUTION CONTAINS 5MG OF DIAZEPAM
     Route: 030
  4. CISORDINOL [Suspect]
     Dosage: ONE ML OF SOLUTION CONTAINS 50MG OF CLOPENTHIXOL
     Route: 030
  5. ZYPREXA [Suspect]
  6. LITHIONIT [Suspect]
     Route: 049
  7. DISIPAL [Concomitant]

REACTIONS (12)
  - ALANINE AMINOTRANSFERASE ABNORMAL [None]
  - ANTIPSYCHOTIC DRUG LEVEL INCREASED [None]
  - ASPARTATE AMINOTRANSFERASE ABNORMAL [None]
  - BLOOD GLUCOSE INCREASED [None]
  - CARDIAC DISORDER [None]
  - DRUG INTERACTION [None]
  - DRUG TOXICITY [None]
  - GAMMA-GLUTAMYLTRANSFERASE ABNORMAL [None]
  - OEDEMA [None]
  - PULMONARY OEDEMA [None]
  - SOMNOLENCE [None]
  - TREATMENT NONCOMPLIANCE [None]
